FAERS Safety Report 17282120 (Version 1)
Quarter: 2020Q1

REPORT INFORMATION
  Report Type: Spontaneous
  Country: DK (occurrence: DK)
  Receive Date: 20200117
  Receipt Date: 20200117
  Transmission Date: 20200409
  Serious: Yes (Death, Hospitalization)
  Sender: FDA-Public Use
  Company Number: DK-TEVA-2020-DK-1168569

PATIENT
  Age: 32 Year
  Sex: Female
  Weight: 105 kg

DRUGS (4)
  1. RIXATHON [Suspect]
     Active Substance: RITUXIMAB
     Indication: RHEUMATOID ARTHRITIS
     Dosage: STRENGTH: 500 MG
     Route: 042
     Dates: start: 20190514, end: 20190527
  2. PREDNISOLONE. [Suspect]
     Active Substance: PREDNISOLONE
     Indication: ADRENOCORTICAL STEROID THERAPY
     Dosage: DOSAGE: VARYING. STRENGTH: VARYING.
     Route: 048
     Dates: start: 201702
  3. ZESSLY [Suspect]
     Active Substance: INFLIXIMAB
     Indication: CROHN^S DISEASE
     Dosage: DOSAGE: 560 MG PER INFUSION. STRENGTH: 100 MG
     Route: 042
     Dates: start: 20190723, end: 20190905
  4. METHOTREXATE. [Concomitant]
     Active Substance: METHOTREXATE
     Indication: RHEUMATOID ARTHRITIS
     Dosage: DOSE AND STRENGTH VARIATION: FROM 10 TO 15 MG
     Route: 058
     Dates: start: 20190327

REACTIONS (5)
  - Pneumonia bacterial [Fatal]
  - Pneumocystis jirovecii pneumonia [Fatal]
  - Pseudomonas infection [Fatal]
  - Pneumonia [Fatal]
  - Respiratory failure [Fatal]

NARRATIVE: CASE EVENT DATE: 20190919
